FAERS Safety Report 15986013 (Version 1)
Quarter: 2019Q1

REPORT INFORMATION
  Report Type: Spontaneous
  Country: JP (occurrence: JP)
  Receive Date: 20190220
  Receipt Date: 20190220
  Transmission Date: 20190418
  Serious: Yes (Life-Threatening, Hospitalization, Other)
  Sender: FDA-Public Use
  Company Number: JP-BAYER-2019-035000

PATIENT
  Age: 23 Year
  Sex: Female
  Weight: 58 kg

DRUGS (7)
  1. LEXOTAN [Concomitant]
     Active Substance: BROMAZEPAM
  2. DICLOFENAC SODIUM. [Concomitant]
     Active Substance: DICLOFENAC SODIUM
  3. ISOBIDE [ISOSORBIDE] [Concomitant]
  4. LOXOPROFEN NA [Concomitant]
     Active Substance: LOXOPROFEN SODIUM
  5. REBAMIPIDE [Concomitant]
     Active Substance: REBAMIPIDE
  6. YAZ [Suspect]
     Active Substance: DROSPIRENONE\ETHINYL ESTRADIOL
     Indication: DYSMENORRHOEA
     Dosage: 1 DF, QD
     Route: 048
     Dates: start: 201806, end: 201812
  7. LOXOPROFEN NA [Concomitant]
     Active Substance: LOXOPROFEN SODIUM

REACTIONS (7)
  - Pneumonia [None]
  - Pain [None]
  - Haemoptysis [None]
  - Contraindicated product administered [None]
  - Pulmonary embolism [Recovering/Resolving]
  - Dyspnoea [Recovering/Resolving]
  - Pelvic venous thrombosis [Recovered/Resolved]

NARRATIVE: CASE EVENT DATE: 20181128
